FAERS Safety Report 10764451 (Version 2)
Quarter: 2015Q1

REPORT INFORMATION
  Report Type: Spontaneous
  Country: US (occurrence: US)
  Receive Date: 20150205
  Receipt Date: 20150306
  Transmission Date: 20150721
  Serious: Yes (Other)
  Sender: FDA-Public Use
  Company Number: US-ASTRAZENECA-2015SE10810

PATIENT
  Age: 64 Year
  Sex: Female

DRUGS (1)
  1. SYMBICORT [Suspect]
     Active Substance: BUDESONIDE\FORMOTEROL FUMARATE DIHYDRATE
     Indication: CHRONIC OBSTRUCTIVE PULMONARY DISEASE
     Dosage: 160/4.5MCG; 1 PUFF; TWO TIMES A DAY
     Route: 055

REACTIONS (5)
  - Vision blurred [Unknown]
  - Cataract [Unknown]
  - Dyspnoea [Unknown]
  - Blindness [Unknown]
  - Off label use [Unknown]

NARRATIVE: CASE EVENT DATE: 2012
